FAERS Safety Report 9247950 (Version 2)
Quarter: 2013Q2

REPORT INFORMATION
  Report Type: Spontaneous
  Country: US (occurrence: US)
  Receive Date: 20130423
  Receipt Date: 20130423
  Transmission Date: 20140414
  Serious: No
  Sender: FDA-Public Use
  Company Number: US-MYLANLABS-2013S1000548

PATIENT
  Age: 76 Year
  Sex: Female

DRUGS (4)
  1. IPRATROPIUM BROMIDE AND ALBUTEROL SULFATE INHALATION SOLUTION [Suspect]
     Indication: CHRONIC OBSTRUCTIVE PULMONARY DISEASE
     Dosage: 5X/DAY
     Route: 055
     Dates: start: 20111128
  2. IPRATROPIUM BROMIDE AND ALBUTEROL SULFATE INHALATION SOLUTION [Suspect]
     Indication: CHRONIC OBSTRUCTIVE PULMONARY DISEASE
     Dosage: 5X/DAY
     Route: 055
     Dates: start: 20111128
  3. IPRATROPIUM BROMIDE AND ALBUTEROL SULFATE INHALATION SOLUTION [Suspect]
     Indication: CHRONIC OBSTRUCTIVE PULMONARY DISEASE
     Dosage: 5X/DAY
     Route: 055
     Dates: start: 20111128
  4. IPRATROPIUM BROMIDE AND ALBUTEROL SULFATE INHALATION SOLUTION [Suspect]
     Indication: CHRONIC OBSTRUCTIVE PULMONARY DISEASE
     Dosage: 5X/DAY
     Route: 055
     Dates: start: 20111128

REACTIONS (2)
  - Drug effect decreased [Not Recovered/Not Resolved]
  - Dyspnoea [Not Recovered/Not Resolved]
